FAERS Safety Report 8853416 (Version 1)
Quarter: 2012Q4

REPORT INFORMATION
  Report Type: Report from Study
  Country: US (occurrence: US)
  Receive Date: 20121022
  Receipt Date: 20121022
  Transmission Date: 20130627
  Serious: Yes (Hospitalization)
  Sender: FDA-Public Use
  Company Number: US-GLAXOSMITHKLINE-A0864654A

PATIENT
  Age: 19 Year
  Sex: Female
  Weight: 74.3 kg

DRUGS (6)
  1. NELARABINE [Suspect]
     Indication: ACUTE LYMPHOCYTIC LEUKAEMIA
  2. MERCAPTOPURINE [Suspect]
     Indication: ACUTE LYMPHOCYTIC LEUKAEMIA
     Dosage: 75MGM2 Per day
     Route: 048
     Dates: start: 20071005
  3. VINCRISTINE [Suspect]
     Indication: ACUTE LYMPHOCYTIC LEUKAEMIA
     Dosage: 1.5MGM2 Cyclic
     Route: 042
     Dates: start: 20071005
  4. DEXAMETHASONE [Suspect]
     Indication: ACUTE LYMPHOCYTIC LEUKAEMIA
     Dosage: 3MGM2 Cyclic
     Route: 048
     Dates: start: 20071005
  5. METHOTREXATE [Suspect]
     Indication: ACUTE LYMPHOCYTIC LEUKAEMIA
     Dosage: 20MGM2 Cyclic
     Route: 048
  6. METHOTREXATE [Suspect]
     Indication: ACUTE LYMPHOCYTIC LEUKAEMIA
     Route: 037
     Dates: start: 20071005

REACTIONS (6)
  - Sepsis [Not Recovered/Not Resolved]
  - Pyrexia [Unknown]
  - Jaundice [Unknown]
  - Pleural effusion [Unknown]
  - Hypotension [Unknown]
  - Acidosis [Unknown]
